FAERS Safety Report 7932888-1 (Version None)
Quarter: 2011Q4

REPORT INFORMATION
  Report Type: 
  Country: None (occurrence: None)
  Receive Date: 20111122
  Receipt Date: 20111115
  Transmission Date: 20120403
  Serious: Yes (Other)
  Sender: FDA-Public Use
  Company Number: GB-ASTELLAS-2011EU003841

PATIENT
  Sex: Male

DRUGS (4)
  1. TAMSULOSIN HCL [Suspect]
     Indication: POLLAKIURIA
  2. VESICARE [Suspect]
     Indication: BLADDER SPASM
     Dosage: 10 MG, UID/QD
     Route: 048
     Dates: start: 20091124, end: 20091224
  3. TAMSULOSIN HCL [Suspect]
     Indication: MICTURITION URGENCY
     Dosage: UNK
     Route: 065
  4. AMITRIPTYLINE HCL [Suspect]
     Dosage: UNK
     Route: 065

REACTIONS (3)
  - HALLUCINATION [None]
  - PSYCHIATRIC SYMPTOM [None]
  - PARANOIA [None]
